FAERS Safety Report 14723449 (Version 2)
Quarter: 2020Q2

REPORT INFORMATION
  Report Type: Report from Study
  Country: IN (occurrence: IN)
  Receive Date: 20180405
  Receipt Date: 20200413
  Transmission Date: 20200713
  Serious: Yes (Hospitalization)
  Sender: FDA-Public Use
  Company Number: PHHY2017IN148969

PATIENT
  Age: 51 Year
  Sex: Male
  Weight: 72 kg

DRUGS (5)
  1. JARDIANCE [Concomitant]
     Active Substance: EMPAGLIFLOZIN
     Indication: DIABETES MELLITUS
     Dosage: 25 MG, QD
     Route: 048
     Dates: start: 20170318
  2. VYMADA [Suspect]
     Active Substance: SACUBITRIL\VALSARTAN
     Indication: CARDIAC FAILURE
     Dosage: 100 MG(SACUBITRIL 49MG/VALSARTAN 51MG), BID
     Route: 048
     Dates: start: 20170318
  3. CONCOR [Concomitant]
     Active Substance: BISOPROLOL FUMARATE
     Indication: PRODUCT USED FOR UNKNOWN INDICATION
     Dosage: 10 MG, QD
     Route: 048
     Dates: start: 20170318
  4. IVABRADINE [Concomitant]
     Active Substance: IVABRADINE
     Indication: CHEST PAIN
     Dosage: 5 MG, BID
     Route: 048
     Dates: start: 20170318
  5. EPTUS [Concomitant]
     Indication: BLOOD PRESSURE ABNORMAL
     Dosage: 20 MG, QD
     Route: 048

REACTIONS (3)
  - Tachycardia [Recovering/Resolving]
  - Dry throat [Unknown]
  - Dyspnoea [Recovering/Resolving]

NARRATIVE: CASE EVENT DATE: 201708
